FAERS Safety Report 13227984 (Version 5)
Quarter: 2017Q2

REPORT INFORMATION
  Report Type: Spontaneous
  Country: US (occurrence: US)
  Receive Date: 20170213
  Receipt Date: 20170615
  Transmission Date: 20170830
  Serious: Yes (Death, Hospitalization, Other)
  Sender: FDA-Public Use
  Company Number: US-SAOL THERAPEUTICS-2016SAO00804

PATIENT
  Age: 30 Year
  Sex: Female

DRUGS (19)
  1. BUTRANS [Suspect]
     Active Substance: BUPRENORPHINE
  2. LIORESAL [Suspect]
     Active Substance: BACLOFEN
     Indication: CEREBRAL PALSY
     Dosage: UNK
     Dates: start: 20161010
  3. NEURONTIN [Concomitant]
     Active Substance: GABAPENTIN
     Dosage: 100 MG, 2X/DAY
  4. IMITREX [Concomitant]
     Active Substance: SUMATRIPTAN SUCCINATE
  5. NORCO [Concomitant]
     Active Substance: ACETAMINOPHEN\HYDROCODONE BITARTRATE
     Dosage: 1 TABLETS, AS NEEDED
     Route: 048
  6. RELAFEN [Concomitant]
     Active Substance: NABUMETONE
     Dosage: 500 MG, 2X/DAY
  7. LIORESAL [Suspect]
     Active Substance: BACLOFEN
     Dosage: 900 ?G, \DAY
     Dates: start: 20170204
  8. PROAIR HFA [Concomitant]
     Active Substance: ALBUTEROL SULFATE
     Dosage: 1 DOSAGE UNITS, AS NEEDED
     Route: 055
  9. CLEOCIN [Concomitant]
     Active Substance: CLINDAMYCIN PHOSPHATE
     Dosage: 300 MG, 4X/DAY
     Route: 048
  10. BACTROBAN [Concomitant]
     Active Substance: MUPIROCIN\MUPIROCIN CALCIUM
     Dosage: UNK, 2X/DAY
     Route: 061
     Dates: start: 201701, end: 20170101
  11. PERCOCET 5/325 [Concomitant]
     Dosage: 1 TABLETS, AS NEEDED
  12. DEXILANT [Concomitant]
     Active Substance: DEXLANSOPRAZOLE
     Dosage: 60 MG, 1X/DAY
     Route: 048
  13. SINGULAIR [Concomitant]
     Active Substance: MONTELUKAST SODIUM
     Dosage: 10 MG, 1X/DAY
     Route: 048
  14. LIORESAL [Suspect]
     Active Substance: BACLOFEN
     Indication: MUSCLE SPASTICITY
     Dosage: UNK
     Route: 037
     Dates: end: 20161010
  15. ACCUNEB NEB SOLUTION [Concomitant]
     Dosage: UNK, AS NEEDED
     Route: 055
  16. FLEXERIL [Concomitant]
     Active Substance: CYCLOBENZAPRINE HYDROCHLORIDE
     Dosage: 15 MG, AS NEEDED
     Route: 048
  17. LINZESS [Concomitant]
     Active Substance: LINACLOTIDE
     Dosage: 145 ?G, 1X/DAY AS NEEDED
     Route: 048
  18. DITROPAN [Concomitant]
     Active Substance: OXYBUTYNIN CHLORIDE
     Dosage: 15 MG, 2X/DAY
     Route: 048
  19. CYMBALTA [Concomitant]
     Active Substance: DULOXETINE HYDROCHLORIDE
     Dosage: 60 MG, 1X/DAY
     Route: 048

REACTIONS (32)
  - Oxygen saturation decreased [Unknown]
  - Status epilepticus [None]
  - Urinary tract infection bacterial [Unknown]
  - Cardiac murmur [Unknown]
  - Unresponsive to stimuli [Recovered/Resolved]
  - Staphylococcal infection [Unknown]
  - Tachycardia [Unknown]
  - Pneumothorax [Recovered/Resolved]
  - C-reactive protein increased [Unknown]
  - Dizziness [Unknown]
  - Buttock injury [Unknown]
  - Haemorrhoids [Unknown]
  - Encephalopathy [None]
  - Atrial fibrillation [Unknown]
  - Septic shock [Fatal]
  - Respiratory depression [Unknown]
  - Faecaloma [Unknown]
  - Overdose [None]
  - Intestinal obstruction [None]
  - Cardiac arrest [None]
  - Abdominal distension [Recovering/Resolving]
  - Abdominal compartment syndrome [Unknown]
  - Multiple organ dysfunction syndrome [Fatal]
  - Respiratory failure [Unknown]
  - Therapeutic response decreased [Unknown]
  - Large intestine perforation [None]
  - Hyperammonaemia [Unknown]
  - Blood glucose increased [Unknown]
  - Cardiomegaly [Unknown]
  - Colitis ischaemic [None]
  - Acute kidney injury [None]
  - Tri-iodothyronine free decreased [Unknown]

NARRATIVE: CASE EVENT DATE: 201608
